FAERS Safety Report 5094021-6 (Version None)
Quarter: 2006Q3

REPORT INFORMATION
  Report Type: 
  Country: None (occurrence: None)
  Receive Date: 20060829
  Receipt Date: 20060815
  Transmission Date: 20061208
  Serious: Yes (Hospitalization)
  Sender: FDA-Public Use
  Company Number: GXKR2006GB04815

PATIENT
  Age: 57 Year
  Sex: Male

DRUGS (6)
  1. ASPIRIN [Suspect]
     Dosage: 75 MG, QD, ORAL
     Route: 048
     Dates: end: 20060625
  2. HUMALOG [Concomitant]
  3. LANTUS [Concomitant]
  4. LISINOPRIL [Concomitant]
  5. METFORMIN [Concomitant]
  6. SIMVASTATIN [Concomitant]

REACTIONS (5)
  - DUODENITIS [None]
  - DYSPNOEA [None]
  - EXERCISE TOLERANCE DECREASED [None]
  - GASTRITIS [None]
  - PALLOR [None]
